FAERS Safety Report 10172399 (Version 1)
Quarter: 2014Q2

REPORT INFORMATION
  Report Type: Spontaneous
  Country: US (occurrence: US)
  Receive Date: 20140515
  Receipt Date: 20140515
  Transmission Date: 20141212
  Serious: No
  Sender: FDA-Public Use
  Company Number: US-ASTRAZENECA-2014SE28114

PATIENT
  Sex: Female

DRUGS (1)
  1. ZOLADEX [Suspect]
     Dosage: NOT REPORTED NR
     Route: 058

REACTIONS (1)
  - Carbohydrate antigen 15-3 increased [Unknown]
